FAERS Safety Report 9191399 (Version 2)
Quarter: 2013Q2

REPORT INFORMATION
  Report Type: Report from Study
  Country: US (occurrence: US)
  Receive Date: 20130326
  Receipt Date: 20130429
  Transmission Date: 20140414
  Serious: Yes (Death)
  Sender: FDA-Public Use
  Company Number: PHEH2013US006849

PATIENT
  Age: 53 Year
  Sex: Female

DRUGS (3)
  1. AFINITOR [Suspect]
     Indication: BREAST CANCER
     Dosage: 10 MG, QD
     Route: 048
  2. AFINITOR [Suspect]
     Indication: BONE CANCER
  3. ZOMETA [Concomitant]

REACTIONS (3)
  - Death [Fatal]
  - Asthenia [Unknown]
  - Decreased appetite [Unknown]
